FAERS Safety Report 6672771-5 (Version None)
Quarter: 2010Q2

REPORT INFORMATION
  Report Type: 
  Country: None (occurrence: None)
  Receive Date: 20100408
  Receipt Date: 20100401
  Transmission Date: 20101027
  Serious: Yes (Hospitalization)
  Sender: FDA-Public Use
  Company Number: IT-ASTRAZENECA-2010SE14405

PATIENT
  Age: 38 Year
  Sex: Female

DRUGS (5)
  1. SEROQUEL [Suspect]
     Route: 048
     Dates: start: 20100101, end: 20100320
  2. SEROQUEL [Suspect]
     Dosage: 7 G
     Route: 048
     Dates: start: 20100320, end: 20100320
  3. EN [Concomitant]
  4. VENTOLIN [Concomitant]
  5. ASPIRIN [Concomitant]
     Indication: HYPERCOAGULATION

REACTIONS (6)
  - ALTERED STATE OF CONSCIOUSNESS [None]
  - BLOOD PRESSURE DECREASED [None]
  - ELECTROCARDIOGRAM QT PROLONGED [None]
  - HYPOKINESIA [None]
  - OVERDOSE [None]
  - TACHYCARDIA [None]
